FAERS Safety Report 9681769 (Version 1)
Quarter: 2013Q4

REPORT INFORMATION
  Report Type: Spontaneous
  Country: UA (occurrence: UA)
  Receive Date: 20131003
  Receipt Date: 20131003
  Transmission Date: 20140711
  Serious: Yes (Death)
  Sender: FDA-Public Use
  Company Number: UA-DRREDDYS-GPV/UKR/13/0035047

PATIENT
  Age: 89 Year
  Sex: Female

DRUGS (2)
  1. CIPROLET 500MG FILM COATED TABLETS [Suspect]
     Indication: PRODUCT USED FOR UNKNOWN INDICATION
     Route: 048
  2. NIMESIL [Suspect]
     Indication: ANALGESIC THERAPY
     Route: 048
     Dates: start: 20100131

REACTIONS (4)
  - Death [Fatal]
  - Oliguria [Fatal]
  - Anuria [Fatal]
  - Renal failure [Fatal]
